FAERS Safety Report 13883616 (Version 1)
Quarter: 2017Q3

REPORT INFORMATION
  Report Type: Spontaneous
  Country: US (occurrence: US)
  Receive Date: 20170819
  Receipt Date: 20170819
  Transmission Date: 20171127
  Serious: No
  Sender: FDA-Public Use
  Company Number: GXBR2017US001606

PATIENT
  Sex: Female

DRUGS (1)
  1. GLIPIZIDE TABLETS USP [Suspect]
     Active Substance: GLIPIZIDE
     Indication: PRODUCT USED FOR UNKNOWN INDICATION
     Dosage: 5 MG, QD
     Route: 065

REACTIONS (3)
  - Palpitations [Recovered/Resolved]
  - Blood pressure abnormal [Unknown]
  - Headache [Recovered/Resolved]
